FAERS Safety Report 6154974-1 (Version None)
Quarter: 2009Q2

REPORT INFORMATION
  Report Type: 
  Country: None (occurrence: None)
  Receive Date: 20090414
  Receipt Date: 20090408
  Transmission Date: 20091009
  Serious: Yes (Hospitalization)
  Sender: FDA-Public Use
  Company Number: US-GILEAD-2009-0021387

PATIENT

DRUGS (14)
  1. LETAIRIS [Suspect]
     Indication: PULMONARY ARTERIAL HYPERTENSION
     Route: 048
     Dates: start: 20081114
  2. VENTAVIS [Concomitant]
  3. TOPROL-XL [Concomitant]
  4. LISINOPRIL [Concomitant]
  5. PLAVIX [Concomitant]
  6. ASPIRIN [Concomitant]
  7. ALBUTEROL [Concomitant]
  8. ATIVAN [Concomitant]
  9. PROTONIX [Concomitant]
  10. HUMALOG [Concomitant]
  11. TESSALON [Concomitant]
  12. DARVOCET [Concomitant]
  13. PREDNISONE TAB [Concomitant]
  14. NEURONTIN [Concomitant]

REACTIONS (2)
  - ANAEMIA [None]
  - OEDEMA [None]
